FAERS Safety Report 7772424-6 (Version None)
Quarter: 2011Q3

REPORT INFORMATION
  Report Type: 
  Country: None (occurrence: None)
  Receive Date: 20110922
  Receipt Date: 20110912
  Transmission Date: 20111222
  Serious: Yes (Other)
  Sender: FDA-Public Use
  Company Number: PHHY2011BR55296

PATIENT
  Sex: Female
  Weight: 69 kg

DRUGS (5)
  1. ABLOCK PLUS [Concomitant]
     Indication: HYPERTENSION
     Dosage: 1 DF, QD (IN THE MORNING)
  2. VITAMIN E [Suspect]
     Dosage: 1 DF (EVERY OTHER DAY)
     Route: 048
     Dates: start: 20110605
  3. VENALOT [Concomitant]
     Indication: PERIPHERAL VASCULAR DISORDER
     Dosage: 1 DF, QD
  4. ALLOPURINOL [Concomitant]
     Indication: HYPERTENSION
     Dosage: 100 MG, QD
  5. VITAMIN E [Suspect]
     Indication: DARK CIRCLES UNDER EYES
     Dosage: 1 DF, QD
     Route: 048

REACTIONS (2)
  - BLINDNESS [None]
  - VISION BLURRED [None]
